FAERS Safety Report 15089404 (Version 1)
Quarter: 2018Q2

REPORT INFORMATION
  Report Type: Spontaneous
  Country: US (occurrence: US)
  Receive Date: 20180629
  Receipt Date: 20180629
  Transmission Date: 20180711
  Serious: No
  Sender: FDA-Public Use
  Company Number: US-ACCORD-063714

PATIENT
  Age: 14 Year
  Sex: Male
  Weight: 41.73 kg

DRUGS (1)
  1. MYCOPHENOLATE MOFETIL ACCORD [Suspect]
     Active Substance: MYCOPHENOLATE MOFETIL
     Indication: RENAL TRANSPLANT
     Dosage: STRENGTH: 500 MG
     Route: 048
     Dates: start: 201801

REACTIONS (2)
  - Product substitution issue [Unknown]
  - Rash generalised [Unknown]
